FAERS Safety Report 5574507-8 (Version None)
Quarter: 2007Q4

REPORT INFORMATION
  Report Type: 
  Country: None (occurrence: None)
  Receive Date: 20071221
  Receipt Date: 20071217
  Transmission Date: 20080405
  Serious: Yes (Hospitalization)
  Sender: FDA-Public Use
  Company Number: 2007-03756

PATIENT
  Age: 85 Year
  Sex: Female
  Weight: 61 kg

DRUGS (10)
  1. VELCADE [Suspect]
     Indication: NON-HODGKIN'S LYMPHOMA
     Dosage: 1.60 MG/M2,; 2.60 MG,
     Dates: start: 20071017, end: 20071024
  2. VELCADE [Suspect]
     Indication: NON-HODGKIN'S LYMPHOMA
     Dosage: 1.60 MG/M2,; 2.60 MG,
     Dates: start: 20071114
  3. GEMCITABINE [Suspect]
     Indication: NON-HODGKIN'S LYMPHOMA
     Dosage: 800.00 MG/M2,; 1320.00 MG,
     Dates: start: 20071017, end: 20071024
  4. GEMCITABINE [Suspect]
     Indication: NON-HODGKIN'S LYMPHOMA
     Dosage: 800.00 MG/M2,; 1320.00 MG,
     Dates: start: 20071114
  5. COUMADIN [Concomitant]
  6. DIGOXIN [Concomitant]
  7. PRAVACHOL [Concomitant]
  8. TORSEMIDE [Concomitant]
  9. TOPROL-XL [Concomitant]
  10. XALATAN [Concomitant]

REACTIONS (10)
  - DEHYDRATION [None]
  - DIARRHOEA [None]
  - DRUG INTERACTION [None]
  - HAEMATOMA [None]
  - HAEMOGLOBIN DECREASED [None]
  - INTERNATIONAL NORMALISED RATIO INCREASED [None]
  - MUSCULAR WEAKNESS [None]
  - NAUSEA [None]
  - THROMBOCYTOPENIA [None]
  - VOMITING [None]
